FAERS Safety Report 5066791-4 (Version None)
Quarter: 2006Q3

REPORT INFORMATION
  Report Type: 
  Country: None (occurrence: None)
  Receive Date: 20060710
  Receipt Date: 20051128
  Transmission Date: 20061208
  Serious: Yes (Other)
  Sender: FDA-Public Use
  Company Number: US-2005-023163

PATIENT
  Age: 77 Year
  Sex: Female
  Weight: 104 kg

DRUGS (1)
  1. ULTRAVIST 300 [Suspect]
     Indication: COMPUTERISED TOMOGRAM
     Dosage: 180 ML, 1 DOSE, INTRAVENOUS
     Route: 042
     Dates: start: 20051022, end: 20051022

REACTIONS (2)
  - SWELLING FACE [None]
  - URTICARIA [None]
